FAERS Safety Report 7021614-9 (Version None)
Quarter: 2010Q3

REPORT INFORMATION
  Report Type: 
  Country: None (occurrence: None)
  Receive Date: 20100928
  Receipt Date: 20100922
  Transmission Date: 20110219
  Serious: Yes (Other)
  Sender: FDA-Public Use
  Company Number: 2010SP050789

PATIENT
  Sex: Female

DRUGS (1)
  1. ORMIGREIN (ORMIGREIN/01755201/) [Suspect]
     Dosage: PO
     Route: 048

REACTIONS (1)
  - DRUG DEPENDENCE [None]
